FAERS Safety Report 25005977 (Version 1)
Quarter: 2025Q1

REPORT INFORMATION
  Report Type: Spontaneous
  Country: US (occurrence: US)
  Receive Date: 20250224
  Receipt Date: 20250224
  Transmission Date: 20250409
  Serious: No
  Sender: PFIZER
  Company Number: US-PFIZER INC-202400292655

PATIENT
  Age: 70 Year
  Sex: Female

DRUGS (3)
  1. XELJANZ XR [Suspect]
     Active Substance: TOFACITINIB CITRATE
  2. CASANTHRANOL\DOCUSATE SODIUM [Concomitant]
     Active Substance: CASANTHRANOL\DOCUSATE SODIUM
  3. TAM [Concomitant]
     Indication: Laxative supportive care

REACTIONS (1)
  - Illness [Unknown]
